FAERS Safety Report 15357152 (Version 1)
Quarter: 2018Q3

REPORT INFORMATION
  Report Type: Spontaneous
  Country: US (occurrence: US)
  Receive Date: 20180830
  Receipt Date: 20180830
  Transmission Date: 20181010
  Serious: No
  Sender: FDA-Public Use
  Company Number: None

PATIENT
  Age: 77 Year
  Sex: Female
  Weight: 68.04 kg

DRUGS (12)
  1. GABAPENTIN. [Concomitant]
     Active Substance: GABAPENTIN
  2. DULOXETINE. [Concomitant]
     Active Substance: DULOXETINE
  3. LEVOTHYROXINE. [Concomitant]
     Active Substance: LEVOTHYROXINE
  4. LOSARTAN. [Concomitant]
     Active Substance: LOSARTAN
  5. VELTASSA [Concomitant]
     Active Substance: PATIROMER
  6. GLIPIZIDE. [Concomitant]
     Active Substance: GLIPIZIDE
  7. ATORVASTATIN [Concomitant]
     Active Substance: ATORVASTATIN
  8. JANUVIA [Concomitant]
     Active Substance: SITAGLIPTIN PHOSPHATE
  9. OMEPRAZOLE. [Concomitant]
     Active Substance: OMEPRAZOLE
  10. QUETIAPINE. [Concomitant]
     Active Substance: QUETIAPINE
  11. CARVEDILOL. [Concomitant]
     Active Substance: CARVEDILOL
  12. RAYALDEE [Suspect]
     Active Substance: CALCIFEDIOL
     Indication: HYPOPARATHYROIDISM
     Dosage: RAYALDEE 30 MCG 1 TABLET DAILY, AT BEDTIME BY MOUTH
     Route: 048
     Dates: start: 20180212, end: 20180830

REACTIONS (1)
  - Amnesia [None]

NARRATIVE: CASE EVENT DATE: 20180228
